FAERS Safety Report 10401495 (Version 1)
Quarter: 2014Q3

REPORT INFORMATION
  Report Type: Spontaneous
  Country: US (occurrence: None)
  Receive Date: 20140820
  Receipt Date: 20140820
  Transmission Date: 20150326
  Serious: No
  Sender: FDA-Public Use
  Company Number: None

PATIENT
  Age: 57 Year
  Sex: Female

DRUGS (1)
  1. AUBAGIO [Suspect]
     Active Substance: TERIFLUNOMIDE
     Indication: MULTIPLE SCLEROSIS
     Dosage: 1XDAILY? END: 30-AUG-2014
     Route: 048
     Dates: start: 20140125

REACTIONS (9)
  - Alopecia [None]
  - Balance disorder [None]
  - Weight increased [None]
  - Mood swings [None]
  - Faeces discoloured [None]
  - Pain [None]
  - Incontinence [None]
  - Urinary incontinence [None]
  - Dizziness [None]

NARRATIVE: CASE EVENT DATE: 20140125
